FAERS Safety Report 24558966 (Version 1)
Quarter: 2024Q4

REPORT INFORMATION
  Report Type: Spontaneous
  Country: US (occurrence: US)
  Receive Date: 20241029
  Receipt Date: 20241029
  Transmission Date: 20250114
  Serious: No
  Sender: Kenvue
  Company Number: US-KENVUE-20241027022

PATIENT
  Age: 75 Year
  Sex: Female

DRUGS (1)
  1. WOMENS ROGAINE UNSCENTED [Suspect]
     Active Substance: MINOXIDIL
     Indication: Alopecia
     Dosage: UNK UNK, ONCE A DAY
     Route: 061
     Dates: start: 202311

REACTIONS (1)
  - Hair texture abnormal [Recovering/Resolving]

NARRATIVE: CASE EVENT DATE: 20231101
